FAERS Safety Report 4828300-1 (Version None)
Quarter: 2005Q4

REPORT INFORMATION
  Report Type: 
  Country: None (occurrence: None)
  Receive Date: 20051115
  Receipt Date: 20051021
  Transmission Date: 20060501
  Serious: Yes (Disabling)
  Sender: FDA-Public Use
  Company Number: 2005AP05542

PATIENT
  Age: 15946 Day
  Sex: Male

DRUGS (6)
  1. ANAPEINE [Suspect]
     Indication: EPIDURAL ANAESTHESIA
     Route: 008
     Dates: start: 20050917, end: 20050920
  2. LEPETAN [Concomitant]
     Indication: POSTOPERATIVE ANALGESIA
     Route: 008
     Dates: start: 20050919, end: 20050920
  3. FENTANEST [Concomitant]
     Indication: POSTOPERATIVE ANALGESIA
     Route: 008
     Dates: start: 20050917, end: 20050919
  4. DROLEPTAN [Concomitant]
     Indication: NAUSEA
     Route: 008
     Dates: start: 20050917, end: 20050919
  5. XYLOCAINE [Concomitant]
     Indication: ANALGESIC THERAPY
     Route: 008
     Dates: start: 20050919, end: 20050919
  6. XYLOCAINE [Concomitant]
     Route: 008
     Dates: start: 20050919, end: 20050919

REACTIONS (1)
  - SPINAL CORD INFARCTION [None]
